FAERS Safety Report 13868881 (Version 1)
Quarter: 2017Q3

REPORT INFORMATION
  Report Type: Spontaneous
  Country: US (occurrence: US)
  Receive Date: 20170815
  Receipt Date: 20170815
  Transmission Date: 20171127
  Serious: No
  Sender: FDA-Public Use
  Company Number: US-AMGEN-USASP2017120305

PATIENT
  Age: 37 Year
  Sex: Female

DRUGS (3)
  1. MOTRIN [Concomitant]
     Active Substance: IBUPROFEN
     Dosage: UNK UNK, AS NECESSARY
  2. ENBREL [Suspect]
     Active Substance: ETANERCEPT
     Indication: RHEUMATOID ARTHRITIS
     Dosage: 50 MG, QWK (2 OF 25MG VIALS)
     Route: 065
     Dates: start: 20170804
  3. CLARITIN [Concomitant]
     Active Substance: LORATADINE

REACTIONS (4)
  - Feeling jittery [Not Recovered/Not Resolved]
  - Pain in extremity [Not Recovered/Not Resolved]
  - Fatigue [Not Recovered/Not Resolved]
  - Muscular weakness [Not Recovered/Not Resolved]

NARRATIVE: CASE EVENT DATE: 20170807
